FAERS Safety Report 5033680-0 (Version None)
Quarter: 2006Q2

REPORT INFORMATION
  Report Type: 
  Country: None (occurrence: None)
  Receive Date: 20060623
  Receipt Date: 20050620
  Transmission Date: 20061013
  Serious: Yes (Death)
  Sender: FDA-Public Use
  Company Number: JP-JPN-A20051278

PATIENT
  Age: 28 Year
  Sex: Female

DRUGS (3)
  1. FLOLAN [Suspect]
     Indication: PULMONARY HYPERTENSION
     Route: 042
     Dates: start: 20030520
  2. WARFARIN SODIUM [Concomitant]
     Route: 048
  3. FUROSEMIDE [Concomitant]
     Route: 048

REACTIONS (2)
  - PALPITATIONS [None]
  - PULMONARY HYPERTENSION [None]
